FAERS Safety Report 23869151 (Version 1)
Quarter: 2024Q2

REPORT INFORMATION
  Report Type: Spontaneous
  Country: US (occurrence: US)
  Receive Date: 20240517
  Receipt Date: 20240517
  Transmission Date: 20240716
  Serious: No
  Sender: FDA-Public Use
  Company Number: US-Stemline Therapeutics, Inc.-2024ST000828

PATIENT
  Age: 79 Year
  Sex: Female

DRUGS (3)
  1. ORSERDU [Suspect]
     Active Substance: ELACESTRANT
     Indication: Product used for unknown indication
     Route: 048
     Dates: start: 20240131, end: 20240204
  2. ORSERDU [Suspect]
     Active Substance: ELACESTRANT
     Route: 048
     Dates: start: 20240218
  3. ORSERDU [Suspect]
     Active Substance: ELACESTRANT
     Route: 048
     Dates: start: 20240131

REACTIONS (21)
  - Illness [Unknown]
  - Malaise [Unknown]
  - Feeling abnormal [Not Recovered/Not Resolved]
  - Oropharyngeal pain [Recovered/Resolved]
  - Oesophageal pain [Unknown]
  - Road traffic accident [Unknown]
  - Throat irritation [Not Recovered/Not Resolved]
  - Stomach mass [Unknown]
  - Somnolence [Unknown]
  - Somnolence [Unknown]
  - Nausea [Not Recovered/Not Resolved]
  - Insomnia [Unknown]
  - Abdominal discomfort [Not Recovered/Not Resolved]
  - Dyspepsia [Not Recovered/Not Resolved]
  - Abdominal pain upper [Not Recovered/Not Resolved]
  - Constipation [Unknown]
  - Vomiting [Not Recovered/Not Resolved]
  - Fatigue [Unknown]
  - Headache [Unknown]
  - Dizziness [Unknown]
  - Dizziness [Unknown]

NARRATIVE: CASE EVENT DATE: 20240202
